FAERS Safety Report 21690681 (Version 1)
Quarter: 2022Q4

REPORT INFORMATION
  Report Type: Report from Study
  Country: US (occurrence: US)
  Receive Date: 20221206
  Receipt Date: 20221206
  Transmission Date: 20230113
  Serious: Yes (Other)
  Sender: FDA-Public Use
  Company Number: US-ABBVIE-21K-163-4215342-00

PATIENT
  Age: 62 Year
  Sex: Male

DRUGS (5)
  1. HUMIRA [Suspect]
     Active Substance: ADALIMUMAB
     Indication: Ankylosing spondylitis
     Dosage: CITRATE FREE/FORM STRENGTH: 40 MILLIGRAM
     Route: 058
  2. HUMIRA [Suspect]
     Active Substance: ADALIMUMAB
     Dosage: CITRATE FREE/FORM STRENGTH: 40 MILLIGRAM
     Route: 058
  3. MODERNA COVID-19 VACCINE [Concomitant]
     Active Substance: ELASOMERAN
     Indication: COVID-19 immunisation
     Dosage: 2ND DOSE
     Route: 030
     Dates: start: 20210420, end: 20210420
  4. MODERNA COVID-19 VACCINE [Concomitant]
     Active Substance: ELASOMERAN
     Indication: COVID-19 immunisation
     Dosage: 1ST DOSE
     Route: 030
     Dates: start: 20210323, end: 20210323
  5. MODERNA COVID-19 VACCINE [Concomitant]
     Active Substance: ELASOMERAN
     Indication: COVID-19 immunisation
     Dosage: 3RD DOSE
     Route: 030
     Dates: start: 20220314, end: 20220314

REACTIONS (11)
  - Hip arthroplasty [Recovering/Resolving]
  - Weight decreased [Unknown]
  - Hip arthroplasty [Recovering/Resolving]
  - Spinal operation [Unknown]
  - Spinal fusion surgery [Unknown]
  - Nephrolithiasis [Unknown]
  - Arthralgia [Not Recovered/Not Resolved]
  - Peripheral swelling [Recovered/Resolved]
  - Myalgia [Unknown]
  - Skin discolouration [Unknown]
  - Fall [Unknown]

NARRATIVE: CASE EVENT DATE: 20221101
